FAERS Safety Report 13472173 (Version 1)
Quarter: 2017Q2

REPORT INFORMATION
  Report Type: Spontaneous
  Country: IT (occurrence: IT)
  Receive Date: 20170424
  Receipt Date: 20170424
  Transmission Date: 20170830
  Serious: Yes (Hospitalization, Other)
  Sender: FDA-Public Use
  Company Number: IT-VALIDUS PHARMACEUTICALS LLC-IT-2016VAL000437

PATIENT
  Age: 7 Month
  Sex: Male

DRUGS (5)
  1. ENALAPRIL                          /00574902/ [Suspect]
     Active Substance: ENALAPRIL
     Indication: CARDIAC FAILURE CONGESTIVE
     Dosage: 1.8 MG/KG, QD
     Route: 048
  2. FUROSEMIDE. [Suspect]
     Active Substance: FUROSEMIDE
     Dosage: 1.7 MG/KG, QD
     Route: 048
  3. ENALAPRIL                          /00574902/ [Suspect]
     Active Substance: ENALAPRIL
     Dosage: 1.3 MG/KG, QD
     Route: 048
  4. FUROSEMIDE. [Suspect]
     Active Substance: FUROSEMIDE
     Indication: CARDIAC FAILURE CONGESTIVE
     Dosage: 02 MG/KG, QD
     Route: 048
  5. FUROSEMIDE. [Suspect]
     Active Substance: FUROSEMIDE
     Dosage: 0.85 MG/KG, QD
     Route: 048

REACTIONS (10)
  - Decreased appetite [Recovered/Resolved]
  - Metabolic acidosis [Recovered/Resolved]
  - Acute kidney injury [Recovered/Resolved]
  - Blood potassium increased [Recovered/Resolved]
  - Normochromic normocytic anaemia [Recovered/Resolved]
  - Blood urea increased [Recovered/Resolved]
  - Hyponatraemia [Recovered/Resolved]
  - Blood creatinine increased [Recovered/Resolved]
  - Pyrexia [Recovered/Resolved]
  - Dehydration [Recovered/Resolved]
